FAERS Safety Report 9686112 (Version 1)
Quarter: 2013Q4

REPORT INFORMATION
  Report Type: Spontaneous
  Country: JP (occurrence: JP)
  Receive Date: 20131113
  Receipt Date: 20131113
  Transmission Date: 20140711
  Serious: Yes (Other)
  Sender: FDA-Public Use
  Company Number: PHHY2013JP128559

PATIENT
  Age: 20 Year
  Sex: Male

DRUGS (3)
  1. CLOZAPINE [Suspect]
     Indication: SCHIZOPHRENIA
     Dosage: 100 MG, PER DAY
  2. CLOZAPINE [Suspect]
     Dosage: 150 MG, PER DAY
  3. CLOZAPINE [Suspect]
     Dosage: 50 MG, PER DAY

REACTIONS (11)
  - Tricuspid valve incompetence [Unknown]
  - Cardiomyopathy [Recovered/Resolved]
  - Dyspnoea [Unknown]
  - Sinus tachycardia [Unknown]
  - Cardiomegaly [Unknown]
  - Ventricular hypokinesia [Unknown]
  - Ejection fraction decreased [Recovering/Resolving]
  - C-reactive protein increased [Unknown]
  - Hypotension [Unknown]
  - Lung disorder [Unknown]
  - Hyperthermia [Recovered/Resolved]
